FAERS Safety Report 13665228 (Version 1)
Quarter: 2017Q2

REPORT INFORMATION
  Report Type: Spontaneous
  Country: DE (occurrence: DE)
  Receive Date: 20170619
  Receipt Date: 20170619
  Transmission Date: 20170830
  Serious: Yes (Other)
  Sender: FDA-Public Use
  Company Number: DE-PFIZER INC-2017257471

PATIENT
  Age: 47 Year
  Sex: Female
  Weight: 160 kg

DRUGS (16)
  1. VENLAFAXINE HCL [Suspect]
     Active Substance: VENLAFAXINE HYDROCHLORIDE
     Dosage: 225 MG, DAILY
     Route: 048
     Dates: start: 20140908, end: 20141212
  2. VENLAFAXINE HCL [Suspect]
     Active Substance: VENLAFAXINE HYDROCHLORIDE
     Dosage: 300 MG, DAILY
     Route: 048
     Dates: start: 20141213, end: 20151030
  3. QUETIAPIN PFIZER [Suspect]
     Active Substance: QUETIAPINE
  4. AMISULPRID [Suspect]
     Active Substance: AMISULPRIDE
     Dosage: 800 MG, DAILY
     Route: 048
     Dates: start: 20140504, end: 20140612
  5. RAMIPRIL. [Concomitant]
     Active Substance: RAMIPRIL
     Dosage: 10 MG, DAILY
     Route: 048
     Dates: start: 20131219
  6. VENLAFAXINE HCL [Suspect]
     Active Substance: VENLAFAXINE HYDROCHLORIDE
     Dosage: 75 MG, DAILY
     Route: 048
     Dates: start: 20130420, end: 20130430
  7. CLOZAPINE. [Suspect]
     Active Substance: CLOZAPINE
     Dosage: 500 MG, DAILY
     Route: 048
     Dates: start: 20140913, end: 20141130
  8. METOPROLOL. [Concomitant]
     Active Substance: METOPROLOL
     Dosage: 47.5 MG, DAILY
     Route: 048
     Dates: start: 20160120
  9. CLOZAPINE. [Suspect]
     Active Substance: CLOZAPINE
     Dosage: 350 MG, DAILY
     Route: 048
     Dates: start: 20141201, end: 20150630
  10. AMISULPRID [Suspect]
     Active Substance: AMISULPRIDE
     Dosage: 400 MG, DAILY
     Route: 048
     Dates: start: 20140821, end: 20150514
  11. VENLAFAXINE HCL [Suspect]
     Active Substance: VENLAFAXINE HYDROCHLORIDE
     Dosage: 150 MG, DAILY
     Route: 048
     Dates: start: 20151205
  12. AMISULPRID [Suspect]
     Active Substance: AMISULPRIDE
     Dosage: 600 MG, DAILY
     Route: 048
     Dates: start: 20140613, end: 20140820
  13. METOPROLOL. [Concomitant]
     Active Substance: METOPROLOL
     Dosage: 47.5 MG, DAILY
     Route: 048
     Dates: start: 20130905, end: 20141015
  14. METOPROLOL. [Concomitant]
     Active Substance: METOPROLOL
     Dosage: 96 MG, DAILY
     Route: 048
     Dates: start: 20141016, end: 20160119
  15. PANTOPRAZOL [Concomitant]
     Active Substance: PANTOPRAZOLE SODIUM
     Dosage: 40 MG, DAILY
     Dates: start: 20140905
  16. RAMIPRIL. [Concomitant]
     Active Substance: RAMIPRIL
     Dosage: 5 MG, DAILY
     Route: 048
     Dates: start: 20121220, end: 20131218

REACTIONS (2)
  - Weight increased [Recovering/Resolving]
  - Metabolic syndrome [Recovering/Resolving]

NARRATIVE: CASE EVENT DATE: 20150617
